FAERS Safety Report 4673965-0 (Version None)
Quarter: 2005Q2

REPORT INFORMATION
  Report Type: 
  Country: None (occurrence: None)
  Receive Date: 20050524
  Receipt Date: 20050510
  Transmission Date: 20051028
  Serious: Yes (Hospitalization)
  Sender: FDA-Public Use
  Company Number: 2005067783

PATIENT
  Age: 68 Year
  Sex: Male
  Weight: 69 kg

DRUGS (4)
  1. DOXORUBICIN HYDROCHLORIDE [Suspect]
     Indication: HODGKIN'S DISEASE
     Dosage: 44 MG (CYCLIC), INTRAVENOUS
     Route: 042
     Dates: start: 20050404
  2. BLEOMYCIN [Suspect]
     Indication: HODGKIN'S DISEASE
     Dosage: 4 MG (CYCLIC) INTRAVENOUS
     Route: 042
     Dates: start: 20050404
  3. VELBAN [Suspect]
     Indication: HODGKIN'S DISEASE
     Dosage: 10,5 MG (CYCLIC) INTRAVENOUS
     Route: 042
     Dates: start: 20050404
  4. DACARBAZINE [Suspect]
     Indication: HODGKIN'S DISEASE
     Dosage: 530 MG (CYCLIC) INTRAVENOUS
     Route: 042
     Dates: start: 20050404

REACTIONS (4)
  - BLOOD PRESSURE INCREASED [None]
  - CHILLS [None]
  - PHARMACEUTICAL PRODUCT COMPLAINT [None]
  - PYREXIA [None]
